FAERS Safety Report 6546363-2 (Version None)
Quarter: 2010Q1

REPORT INFORMATION
  Report Type: 
  Country: None (occurrence: None)
  Receive Date: 20100114
  Receipt Date: 20091113
  Transmission Date: 20100710
  Serious: No
  Sender: FDA-Public Use
  Company Number: 2009BM000309

PATIENT
  Age: 8 Year
  Sex: Female
  Weight: 26.5 kg

DRUGS (1)
  1. KUVAN [Suspect]
     Indication: PHENYLKETONURIA
     Dosage: 300 MG;QD;PO
     Route: 048
     Dates: start: 20090501

REACTIONS (4)
  - INFLUENZA [None]
  - PAIN [None]
  - PYREXIA [None]
  - VOMITING [None]
